FAERS Safety Report 6176556-8 (Version None)
Quarter: 2009Q2

REPORT INFORMATION
  Report Type: 
  Country: None (occurrence: None)
  Receive Date: 20090501
  Receipt Date: 20090429
  Transmission Date: 20091009
  Serious: Yes (Other)
  Sender: FDA-Public Use
  Company Number: IT-WYE-H04714508

PATIENT
  Sex: Female
  Weight: 59 kg

DRUGS (3)
  1. GEMTUZUMAB OZOGAMICIN [Suspect]
     Indication: ACUTE MYELOID LEUKAEMIA
     Dosage: 3.2MG; FREQUENCY UNKNOWN; WITH A CUMULATIVE DOSE GIVEN 34.2 MG
     Route: 065
     Dates: start: 20070929, end: 20080616
  2. METHYLPREDNISOLONE 4MG TAB [Concomitant]
     Route: 048
     Dates: start: 20080604, end: 20080610
  3. METHYLPREDNISOLONE 4MG TAB [Concomitant]
     Route: 048
     Dates: start: 20080611, end: 20080618

REACTIONS (1)
  - VASCULITIS [None]
